FAERS Safety Report 5363185-9 (Version None)
Quarter: 2007Q2

REPORT INFORMATION
  Report Type: 
  Country: None (occurrence: None)
  Receive Date: 20070620
  Receipt Date: 20070614
  Transmission Date: 20071010
  Serious: Yes (Hospitalization)
  Sender: FDA-Public Use
  Company Number: PHBS2007JP10180

PATIENT
  Age: 52 Year
  Sex: Female

DRUGS (1)
  1. DIOVAN [Suspect]
     Indication: HYPERTENSION
     Dosage: 40 MG/DAY
     Route: 048
     Dates: start: 20070401, end: 20070525

REACTIONS (7)
  - HYPOALBUMINAEMIA [None]
  - HYPOPROTEINAEMIA [None]
  - MALAISE [None]
  - NEPHRITIS INTERSTITIAL [None]
  - NEPHROTIC SYNDROME [None]
  - OEDEMA [None]
  - PROTEIN URINE PRESENT [None]
